FAERS Safety Report 11240533 (Version 1)
Quarter: 2015Q3

REPORT INFORMATION
  Report Type: Spontaneous
  Country: US (occurrence: None)
  Receive Date: 20150701
  Receipt Date: 20150701
  Transmission Date: 20151125
  Serious: Yes (Hospitalization)
  Sender: FDA-Public Use
  Company Number: None

PATIENT
  Age: 58 Year
  Sex: Male
  Weight: 102.3 kg

DRUGS (2)
  1. SULFAMETHOXAZOLE/TRIMETHOPRAM [Suspect]
     Active Substance: SULFAMETHOXAZOLE\TRIMETHOPRIM
     Indication: SURGERY
     Route: 048
     Dates: start: 20150603, end: 20150617
  2. SULFAMETHOXAZOLE/TRIMETHOPRAM [Suspect]
     Active Substance: SULFAMETHOXAZOLE\TRIMETHOPRIM
     Indication: STAPHYLOCOCCAL INFECTION
     Route: 048
     Dates: start: 20150603, end: 20150617

REACTIONS (11)
  - Abdominal discomfort [None]
  - Gastrooesophageal reflux disease [None]
  - Hyponatraemia [None]
  - Rash [None]
  - Hepatitis [None]
  - Anaemia [None]
  - Acute kidney injury [None]
  - Thrombocytopenia [None]
  - Abdominal pain upper [None]
  - Faeces discoloured [None]
  - Leukopenia [None]

NARRATIVE: CASE EVENT DATE: 20150617
